FAERS Safety Report 16822795 (Version 1)
Quarter: 2019Q3

REPORT INFORMATION
  Report Type: Report from Study
  Country: GB (occurrence: GB)
  Receive Date: 20190918
  Receipt Date: 20190918
  Transmission Date: 20191005
  Serious: Yes (Other)
  Sender: FDA-Public Use
  Company Number: GB-PFIZER INC-2019392961

PATIENT
  Age: 22 Year
  Sex: Female

DRUGS (25)
  1. COLECALCIFEROL BENFEROL [Concomitant]
     Indication: PANCREATIC FAILURE
     Dosage: 40000 IU, WEEKLY
     Route: 048
     Dates: start: 2016
  2. TAZOCIN [Suspect]
     Active Substance: PIPERACILLIN SODIUM\TAZOBACTAM SODIUM
     Indication: INFECTIVE PULMONARY EXACERBATION OF CYSTIC FIBROSIS
     Dosage: 4.5 G, FOUR TIMES DAILY
     Route: 042
     Dates: start: 20190327, end: 20190403
  3. TRANEXAMIC ACID. [Concomitant]
     Active Substance: TRANEXAMIC ACID
     Dosage: 1000 MG, FOUR TIMES DAILY
  4. OMEPRAZOLE. [Concomitant]
     Active Substance: OMEPRAZOLE
     Dosage: 20 MG, UNK
  5. TAZOBACTAM [Suspect]
     Active Substance: TAZOBACTAM
     Dosage: UNK
     Route: 042
     Dates: start: 20190508
  6. MEROPENEM. [Suspect]
     Active Substance: MEROPENEM
     Indication: INFECTIVE PULMONARY EXACERBATION OF CYSTIC FIBROSIS
     Dosage: 2 G, THRICE DAILY
     Route: 042
  7. COTRIMOXAZOLE [Suspect]
     Active Substance: SULFAMETHOXAZOLE\TRIMETHOPRIM
     Indication: INFECTIVE PULMONARY EXACERBATION OF CYSTIC FIBROSIS
     Dosage: UNK
  8. SYMKEVI [Suspect]
     Active Substance: IVACAFTOR\TEZACAFTOR
     Indication: CYSTIC FIBROSIS
     Dosage: 1 DF, ONCE DAILY (AM)
     Route: 048
     Dates: start: 20190403, end: 20190725
  9. AZTREONAM LYSINE [Concomitant]
     Active Substance: AZTREONAM LYSINE
     Indication: BACTERIAL DISEASE CARRIER
     Dosage: 75 MG, THRICE DAILY
     Route: 055
  10. URSODEOXYCHOLIC ACID [Concomitant]
     Active Substance: URSODIOL
     Dosage: 500 MG, ONCE DAILY (AM)
  11. DORNASE ALFA. [Concomitant]
     Active Substance: DORNASE ALFA
     Dosage: UNK
     Route: 055
  12. AZITHROMYCIN ANHYDROUS. [Concomitant]
     Active Substance: AZITHROMYCIN ANHYDROUS
     Indication: CYSTIC FIBROSIS LUNG
     Dosage: 250 MG, ONCE DAILY
     Route: 048
  13. TOBRAMYCIN. [Suspect]
     Active Substance: TOBRAMYCIN
     Indication: INFECTIVE PULMONARY EXACERBATION OF CYSTIC FIBROSIS
     Dosage: 240 MG, ONCE DAILY
     Route: 042
     Dates: start: 20190327
  14. CEFTOLOZANE [Suspect]
     Active Substance: CEFTOLOZANE
     Dosage: UNK
     Route: 042
     Dates: start: 20190508
  15. NOVORAPID [Concomitant]
     Active Substance: INSULIN ASPART
     Dosage: 10 ML, UNK
  16. HYDROXYCHLOROQUINE [Concomitant]
     Active Substance: HYDROXYCHLOROQUINE
     Dosage: 200 MG, ONCE DAILY
  17. IMIPENEM [Suspect]
     Active Substance: IMIPENEM
     Indication: INFECTIVE PULMONARY EXACERBATION OF CYSTIC FIBROSIS
     Dosage: UNK
     Route: 042
  18. CREON [Concomitant]
     Active Substance: PANCRELIPASE AMYLASE\PANCRELIPASE LIPASE\PANCRELIPASE PROTEASE
     Dosage: UNK
  19. FERROUS FUMARATE [Concomitant]
     Active Substance: FERROUS FUMARATE
     Dosage: 210 MG, UNK
  20. PARAVIT [Concomitant]
     Active Substance: ACETAMINOPHEN\ASCORBIC ACID
     Dosage: UNK
  21. SULFASALAZINE. [Concomitant]
     Active Substance: SULFASALAZINE
     Indication: ARTHROPATHY
     Dosage: 1500 MG, ONCE DAILY (AM)
  22. KALYDECO [Suspect]
     Active Substance: IVACAFTOR
     Indication: CYSTIC FIBROSIS
     Dosage: 150 MG, ONCE DAILY (PM)
     Route: 048
     Dates: start: 20190403, end: 20190725
  23. CREON [Concomitant]
     Active Substance: PANCRELIPASE AMYLASE\PANCRELIPASE LIPASE\PANCRELIPASE PROTEASE
     Dosage: UNK
  24. MINOCYCLINE [Concomitant]
     Active Substance: MINOCYCLINE HYDROCHLORIDE
     Dosage: 100 MG, ONCE DAILY
  25. SODIUM CHLORIDE. [Concomitant]
     Active Substance: SODIUM CHLORIDE
     Dosage: 1200 MG, THRICE DAILY

REACTIONS (5)
  - Hepatic enzyme increased [Recovering/Resolving]
  - Vitiligo [Unknown]
  - Blood alkaline phosphatase increased [Recovering/Resolving]
  - Blood bilirubin increased [Recovering/Resolving]
  - Gamma-glutamyltransferase increased [Recovering/Resolving]

NARRATIVE: CASE EVENT DATE: 2019
